FAERS Safety Report 4436058-3 (Version None)
Quarter: 2004Q3

REPORT INFORMATION
  Report Type: 
  Country: None (occurrence: None)
  Receive Date: 20040726
  Receipt Date: 20040412
  Transmission Date: 20050211
  Serious: No
  Sender: FDA-Public Use
  Company Number: USA040464667

PATIENT
  Age: 73 Year
  Sex: Female

DRUGS (1)
  1. FORTEO [Suspect]
     Dates: start: 20040401, end: 20040411

REACTIONS (3)
  - LOOSE STOOLS [None]
  - NAUSEA [None]
  - PRURITUS GENERALISED [None]
